FAERS Safety Report 25686163 (Version 1)
Quarter: 2025Q3

REPORT INFORMATION
  Report Type: Spontaneous
  Country: US (occurrence: US)
  Receive Date: 20250815
  Receipt Date: 20250815
  Transmission Date: 20251020
  Serious: No
  Sender: ALEXION PHARMACEUTICALS
  Company Number: US-AstraZeneca-CH-00930678A

PATIENT
  Age: 75 Year
  Sex: Female

DRUGS (2)
  1. BREZTRI [Suspect]
     Active Substance: BUDESONIDE\FORMOTEROL\GLYCOPYRROLATE
     Route: 065
  2. RESTORIL [Concomitant]
     Active Substance: TEMAZEPAM
     Route: 065

REACTIONS (5)
  - Nausea [Unknown]
  - Feeling jittery [Unknown]
  - Depressed mood [Unknown]
  - Arthritis [Unknown]
  - Irritability [Unknown]
